FAERS Safety Report 13920142 (Version 1)
Quarter: 2017Q3

REPORT INFORMATION
  Report Type: Spontaneous
  Country: US (occurrence: US)
  Receive Date: 20170830
  Receipt Date: 20170830
  Transmission Date: 20171127
  Serious: Yes (Death)
  Sender: FDA-Public Use
  Company Number: US-TEVA-800354USA

PATIENT
  Age: 64 Year
  Sex: Female

DRUGS (1)
  1. MEGESTROL [Suspect]
     Active Substance: MEGESTROL
     Indication: ENDOMETRIAL ADENOCARCINOMA
     Route: 065

REACTIONS (2)
  - Death [Fatal]
  - Weight increased [Unknown]
